FAERS Safety Report 5592512-2 (Version None)
Quarter: 2008Q1

REPORT INFORMATION
  Report Type: 
  Country: None (occurrence: None)
  Receive Date: 20080115
  Receipt Date: 20080108
  Transmission Date: 20080703
  Serious: Yes (Other)
  Sender: FDA-Public Use
  Company Number: US-PFIZER INC-2008002339

PATIENT
  Sex: Female
  Weight: 90 kg

DRUGS (1)
  1. PROVERA [Suspect]
     Route: 048

REACTIONS (1)
  - BREAST MASS [None]
